FAERS Safety Report 20190297 (Version 1)
Quarter: 2021Q4

REPORT INFORMATION
  Report Type: Report from Study
  Country: CA (occurrence: CA)
  Receive Date: 20211215
  Receipt Date: 20211215
  Transmission Date: 20220303
  Serious: Yes (Hospitalization, Other)
  Sender: FDA-Public Use
  Company Number: CA-FERRINGPH-2021FE07906

PATIENT
  Age: 82 Year
  Sex: Male

DRUGS (2)
  1. DEGARELIX [Suspect]
     Active Substance: DEGARELIX
     Indication: Hormone-dependent prostate cancer
     Dosage: 80 MG, MONTHLY
     Route: 065
     Dates: end: 20211115
  2. DEGARELIX [Suspect]
     Active Substance: DEGARELIX
     Dosage: 240 MG, ONCE/SINGLE
     Route: 065

REACTIONS (5)
  - Adverse reaction [Unknown]
  - Loss of consciousness [Unknown]
  - Loss of consciousness [Unknown]
  - Hypotension [Unknown]
  - Pain [Unknown]

NARRATIVE: CASE EVENT DATE: 20210101
